FAERS Safety Report 5694885-9 (Version None)
Quarter: 2008Q2

REPORT INFORMATION
  Report Type: 
  Country: None (occurrence: None)
  Receive Date: 20080404
  Receipt Date: 20080327
  Transmission Date: 20081010
  Serious: Yes (Disabling, Other)
  Sender: FDA-Public Use
  Company Number: PHBS2008IT02208

PATIENT
  Age: 82 Year
  Sex: Female

DRUGS (3)
  1. ZOMETA [Suspect]
     Indication: MULTIPLE MYELOMA
     Dosage: 4 MG, QMO
     Route: 042
     Dates: start: 20040101, end: 20040630
  2. PREDNISONE [Concomitant]
     Route: 065
  3. ALKERAN [Concomitant]
     Route: 065

REACTIONS (6)
  - JAW DISORDER [None]
  - MASTICATION DISORDER [None]
  - ORAL DISORDER [None]
  - OSTEOMYELITIS [None]
  - OSTEONECROSIS [None]
  - SURGERY [None]
